FAERS Safety Report 16287532 (Version 2)
Quarter: 2019Q2

REPORT INFORMATION
  Report Type: Spontaneous
  Country: ES (occurrence: ES)
  Receive Date: 20190508
  Receipt Date: 20190513
  Transmission Date: 20190711
  Serious: Yes (Death, Hospitalization, Other)
  Sender: FDA-Public Use
  Company Number: ES-009507513-1905ESP002739

PATIENT
  Age: 65 Year
  Sex: Female

DRUGS (11)
  1. MORPHINE [Concomitant]
     Active Substance: MORPHINE
     Indication: ANALGESIC THERAPY
     Dosage: UNK
     Dates: start: 201609
  2. BUSULFAN. [Concomitant]
     Active Substance: BUSULFAN
     Dosage: UNK
     Dates: start: 201608
  3. TACROLIMUS. [Concomitant]
     Active Substance: TACROLIMUS
     Indication: IMMUNOSUPPRESSION
     Dosage: UNK
     Dates: start: 201609
  4. ACYCLOVIR. [Concomitant]
     Active Substance: ACYCLOVIR
     Dosage: 800 MILLIGRAM, 12 HOURS
     Dates: start: 201609
  5. DAPTOMYCIN. [Suspect]
     Active Substance: DAPTOMYCIN
     Indication: EVIDENCE BASED TREATMENT
     Dosage: 10 MILLIGRAM / KILOGRAM/DAY
     Dates: start: 201609
  6. FLUDARABINE PHOSPHATE. [Concomitant]
     Active Substance: FLUDARABINE PHOSPHATE
     Dosage: UNK
     Dates: start: 201608
  7. CYCLOPHOSPHAMIDE. [Concomitant]
     Active Substance: CYCLOPHOSPHAMIDE
     Indication: PROPHYLAXIS AGAINST GRAFT VERSUS HOST DISEASE
     Dosage: UNK
     Dates: start: 201608
  8. LEVOFLOXACIN. [Concomitant]
     Active Substance: LEVOFLOXACIN
     Indication: INFECTION PROPHYLAXIS
     Dosage: 500 MILLIGRAM, DAY
     Dates: start: 201609
  9. MEROPENEM. [Concomitant]
     Active Substance: MEROPENEM
     Dosage: 1 GRAM, 8 HOURS IN EXTENDED PERFUSIONOF 4 H
     Dates: start: 201609
  10. MYCOPHENOLATE MOFETIL. [Concomitant]
     Active Substance: MYCOPHENOLATE MOFETIL
     Indication: IMMUNOSUPPRESSION
     Dosage: UNK
     Dates: start: 201609
  11. FLUCONAZOLE. [Concomitant]
     Active Substance: FLUCONAZOLE
     Indication: INFECTION PROPHYLAXIS
     Dosage: 400 MILLIGRAM, DAY
     Dates: start: 201609

REACTIONS (14)
  - Hypoxic-ischaemic encephalopathy [Fatal]
  - Upper airway obstruction [Fatal]
  - Epistaxis [Fatal]
  - Mucormycosis [Fatal]
  - Thrombocytopenia [Fatal]
  - Haemorrhage [Fatal]
  - Macroglossia [Fatal]
  - Post procedural haemorrhage [Fatal]
  - Coma scale abnormal [Fatal]
  - Fungal infection [Fatal]
  - Laryngeal haematoma [Fatal]
  - Ischaemic stroke [Fatal]
  - Mass [Fatal]
  - Dyspnoea [Fatal]

NARRATIVE: CASE EVENT DATE: 201609
